FAERS Safety Report 4276716-7 (Version None)
Quarter: 2004Q1

REPORT INFORMATION
  Report Type: 
  Country: None (occurrence: None)
  Receive Date: 20040120
  Receipt Date: 20040112
  Transmission Date: 20041129
  Serious: Yes (Hospitalization)
  Sender: FDA-Public Use
  Company Number: 2004UW00535

PATIENT
  Age: 60 Year
  Sex: Female

DRUGS (3)
  1. NOLVADEX [Suspect]
     Indication: BREAST CANCER
     Dates: start: 19980101, end: 20030701
  2. ZOLOFT [Concomitant]
  3. VALIUM [Concomitant]

REACTIONS (1)
  - CONFUSIONAL STATE [None]
